FAERS Safety Report 9041235 (Version 1)
Quarter: 2013Q1

REPORT INFORMATION
  Report Type: Spontaneous
  Country: US (occurrence: None)
  Receive Date: 20130114
  Receipt Date: 20130114
  Transmission Date: 20140127
  Serious: Yes (Other)
  Sender: FDA-Public Use
  Company Number: 2012AM006964

PATIENT
  Sex: Female

DRUGS (3)
  1. SYMLINPEN 60 (PRAMLINTIDE ACETATE) PEN-INJECTOR (1.0 MG/ML) [Suspect]
     Indication: TYPE 1 DIABETES MELLITUS
     Route: 058
     Dates: start: 20121211
  2. SYMLIN (PRAMLINTIDE ACETATE) INJECTION (0.6 MG/ML) [Suspect]
     Route: 058
     Dates: end: 2009
  3. NOVOLOG [Concomitant]

REACTIONS (11)
  - Brain injury [None]
  - Oesophageal stenosis [None]
  - Hypoglycaemia unawareness [None]
  - Blood glucose increased [None]
  - Constipation [None]
  - Dyspepsia [None]
  - Gastrointestinal disorder [None]
  - Fatigue [None]
  - Nausea [None]
  - Decreased appetite [None]
  - Increased appetite [None]
